FAERS Safety Report 19767378 (Version 1)
Quarter: 2021Q3

REPORT INFORMATION
  Report Type: Spontaneous
  Country: US (occurrence: US)
  Receive Date: 20210830
  Receipt Date: 20210830
  Transmission Date: 20211014
  Serious: Yes (Hospitalization)
  Sender: FDA-Public Use
  Company Number: None

PATIENT
  Age: 70 Year
  Sex: Female

DRUGS (8)
  1. GABAPENTIN. [Concomitant]
     Active Substance: GABAPENTIN
  2. DICLOFENAC [Concomitant]
     Active Substance: DICLOFENAC
  3. ALLOPURINOL. [Concomitant]
     Active Substance: ALLOPURINOL
  4. TACROLIMUS. [Concomitant]
     Active Substance: TACROLIMUS
  5. PANTOPRAZOLE [Concomitant]
     Active Substance: PANTOPRAZOLE
  6. LISINOPRIL. [Concomitant]
     Active Substance: LISINOPRIL
  7. ROSUVASTATIN. [Concomitant]
     Active Substance: ROSUVASTATIN
  8. ZORTRESS [Suspect]
     Active Substance: EVEROLIMUS
     Indication: ORGAN TRANSPLANT
     Route: 048
     Dates: start: 20180126

REACTIONS (3)
  - Surgery [None]
  - Hernia [None]
  - Therapy interrupted [None]

NARRATIVE: CASE EVENT DATE: 20210716
